FAERS Safety Report 16860650 (Version 1)
Quarter: 2019Q3

REPORT INFORMATION
  Report Type: Spontaneous
  Country: ES (occurrence: ES)
  Receive Date: 20190927
  Receipt Date: 20190927
  Transmission Date: 20191005
  Serious: Yes (Hospitalization, Other)
  Sender: FDA-Public Use
  Company Number: ES-009507513-1909ESP014290

PATIENT
  Age: 31 Year
  Sex: Female
  Weight: 56 kg

DRUGS (4)
  1. PUREGON (FOLLITROPIN BETA) [Suspect]
     Active Substance: FOLLITROPIN
     Indication: IN VITRO FERTILISATION
     Dosage: 200 (UNITS NOT PROVIDED), EVERY DAY
     Dates: start: 20141106, end: 20141112
  2. NUVARING [Concomitant]
     Active Substance: ETHINYL ESTRADIOL\ETONOGESTREL
     Dosage: UNK
     Dates: start: 20141012, end: 20141101
  3. CETROTIDE [Suspect]
     Active Substance: CETRORELIX ACETATE
     Indication: IN VITRO FERTILISATION
     Dosage: 1 (UNITS NOT PROVIDED); EVERY DAY
     Dates: start: 20141111, end: 20141112
  4. OVITRELLE [Concomitant]
     Active Substance: CHORIOGONADOTROPIN ALFA
     Dosage: UNK
     Route: 058
     Dates: start: 20141112, end: 20141112

REACTIONS (5)
  - Amniotic cavity infection [Unknown]
  - Foetal death [Unknown]
  - Shortened cervix [Unknown]
  - Abdominal pain [Unknown]
  - Maternal exposure before pregnancy [Recovered/Resolved]

NARRATIVE: CASE EVENT DATE: 20150325
